FAERS Safety Report 9869646 (Version 1)
Quarter: 2014Q1

REPORT INFORMATION
  Report Type: Spontaneous
  Country: US (occurrence: US)
  Receive Date: 20140205
  Receipt Date: 20140205
  Transmission Date: 20141002
  Serious: Yes (Hospitalization)
  Sender: FDA-Public Use
  Company Number: US-SA-2014SA013739

PATIENT
  Age: 43 Year
  Sex: Male

DRUGS (4)
  1. FABRAZYME [Suspect]
     Indication: FABRY^S DISEASE
     Route: 042
     Dates: start: 20030722
  2. BENADRYL [Concomitant]
     Indication: PREMEDICATION
  3. ACETAMINOPHEN [Concomitant]
     Indication: PREMEDICATION
  4. CORTICOSTEROIDS [Concomitant]
     Indication: PREMEDICATION

REACTIONS (4)
  - Clostridium difficile infection [Unknown]
  - Abdominal pain upper [Unknown]
  - Pulmonary embolism [Unknown]
  - Dyspnoea [Unknown]
